FAERS Safety Report 6875194-9 (Version None)
Quarter: 2010Q3

REPORT INFORMATION
  Report Type: 
  Country: None (occurrence: None)
  Receive Date: 20100727
  Receipt Date: 20100713
  Transmission Date: 20110219
  Serious: Yes (Hospitalization, Other)
  Sender: FDA-Public Use
  Company Number: PHHY2010AU47521

PATIENT
  Sex: Female

DRUGS (3)
  1. ZOMETA [Suspect]
     Indication: MULTIPLE MYELOMA
     Dosage: UNK
  2. AREDIA [Suspect]
     Indication: MULTIPLE MYELOMA
     Dosage: UNK
  3. SENSIPAR [Concomitant]
     Dosage: UNK

REACTIONS (19)
  - BLOOD CALCIUM INCREASED [None]
  - BLOOD PARATHYROID HORMONE INCREASED [None]
  - BONE DISORDER [None]
  - CONCOMITANT DISEASE AGGRAVATED [None]
  - DEPRESSION [None]
  - FALL [None]
  - FEMUR FRACTURE [None]
  - HYPERPARATHYROIDISM [None]
  - INCLUSION BODY MYOSITIS [None]
  - INTRAMEDULLARY ROD INSERTION [None]
  - MOOD SWINGS [None]
  - MUSCLE ATROPHY [None]
  - MUSCULAR WEAKNESS [None]
  - PAIN [None]
  - PARATHYROIDECTOMY [None]
  - POOR VENOUS ACCESS [None]
  - PSYCHIATRIC SYMPTOM [None]
  - SPINAL DISORDER [None]
  - SPINAL OPERATION [None]
